FAERS Safety Report 8831362 (Version 1)
Quarter: 2012Q4

REPORT INFORMATION
  Report Type: 
  Country: ES (occurrence: ES)
  Receive Date: 20121009
  Receipt Date: 20121009
  Transmission Date: 20130627
  Serious: Yes (Other)
  Sender: FDA-Public Use
  Company Number: ES-ACCORD-014849

PATIENT
  Age: 62 Year
  Sex: Male

DRUGS (1)
  1. MITOMYCIN [Suspect]
     Indication: BLADDER CARCINOMA
     Route: 043

REACTIONS (2)
  - Folliculitis [Recovered/Resolved]
  - Bladder cancer [Unknown]
